FAERS Safety Report 12323527 (Version 2)
Quarter: 2016Q2

REPORT INFORMATION
  Report Type: Report from Study
  Country: CA (occurrence: CA)
  Receive Date: 20160502
  Receipt Date: 20160504
  Transmission Date: 20160815
  Serious: Yes (Death)
  Sender: FDA-Public Use
  Company Number: PHHY2016CA005488

PATIENT
  Age: 75 Year
  Sex: Male

DRUGS (4)
  1. SANDOSTATIN [Suspect]
     Active Substance: OCTREOTIDE ACETATE
     Indication: NEUROENDOCRINE TUMOUR
     Dosage: (TEST DOSE) ONCE/SINGLE
     Route: 058
     Dates: start: 20150722, end: 20150722
  2. OXYGEN. [Concomitant]
     Active Substance: OXYGEN
     Indication: PRODUCT USED FOR UNKNOWN INDICATION
     Dosage: 3.5 L/MIN
     Route: 045
  3. SANDOSTATIN LAR DEPOT [Suspect]
     Active Substance: OCTREOTIDE ACETATE
     Indication: NEUROENDOCRINE TUMOUR
     Dosage: 30 MG, QMO (EVERY 4 WEEKS)
     Route: 030
     Dates: start: 20150728, end: 20160407
  4. METOPROLOL. [Suspect]
     Active Substance: METOPROLOL
     Indication: NEUROENDOCRINE TUMOUR
     Route: 048

REACTIONS (9)
  - Heart rate irregular [Unknown]
  - Urinary tract infection [Unknown]
  - Blood pressure systolic increased [Unknown]
  - Heart rate decreased [Unknown]
  - Product use issue [Unknown]
  - Death [Fatal]
  - Blood pressure diastolic decreased [Unknown]
  - Respiratory rate increased [Unknown]
  - Blood pressure diastolic increased [Unknown]

NARRATIVE: CASE EVENT DATE: 20160114
